FAERS Safety Report 10036387 (Version 1)
Quarter: 2014Q1

REPORT INFORMATION
  Report Type: Spontaneous
  Country: DE (occurrence: DE)
  Receive Date: 20140325
  Receipt Date: 20140325
  Transmission Date: 20141002
  Serious: Yes (Hospitalization)
  Sender: FDA-Public Use
  Company Number: DE-PFIZER INC-2014082998

PATIENT
  Age: 76 Year
  Sex: Male

DRUGS (3)
  1. CELEBREX [Suspect]
     Dosage: UNK
     Dates: start: 20140305
  2. SIMVASTATIN [Concomitant]
  3. ENOXAPARIN [Concomitant]

REACTIONS (5)
  - Cerebrovascular accident [Recovering/Resolving]
  - Hemiparesis [Recovering/Resolving]
  - Jaundice [Unknown]
  - Transaminases increased [Recovering/Resolving]
  - Drug-induced liver injury [Unknown]
